FAERS Safety Report 20379637 (Version 1)
Quarter: 2022Q1

REPORT INFORMATION
  Report Type: Spontaneous
  Country: US (occurrence: None)
  Receive Date: 20220126
  Receipt Date: 20220126
  Transmission Date: 20220423
  Serious: No
  Sender: FDA-Public Use
  Company Number: None

PATIENT
  Age: 79 Year
  Sex: Female
  Weight: 89 kg

DRUGS (1)
  1. PAXLOVID [Suspect]
     Active Substance: NIRMATRELVIR\RITONAVIR
     Indication: COVID-19
     Dates: start: 20220121, end: 20220126

REACTIONS (5)
  - Abdominal pain upper [None]
  - Pruritus [None]
  - Diarrhoea [None]
  - Myalgia [None]
  - Decreased appetite [None]

NARRATIVE: CASE EVENT DATE: 20220126
